FAERS Safety Report 6382897-1 (Version None)
Quarter: 2009Q3

REPORT INFORMATION
  Report Type: 
  Country: None (occurrence: None)
  Receive Date: 20090925
  Receipt Date: 20090925
  Transmission Date: 20100115
  Serious: Yes (Disabling)
  Sender: FDA-Public Use
  Company Number: None

PATIENT
  Age: 87 Year
  Sex: Male
  Weight: 74.8435 kg

DRUGS (1)
  1. HYALURONIDASE [Suspect]
     Indication: CONJUNCTIVAL OPERATION
     Dosage: 1CC 1 DOSE OPHTHALMIC
     Route: 047
     Dates: start: 20090915, end: 20090915

REACTIONS (5)
  - INFLAMMATION [None]
  - PERIORBITAL CELLULITIS [None]
  - PERIORBITAL DISORDER [None]
  - POST PROCEDURAL COMPLICATION [None]
  - VISUAL ACUITY REDUCED [None]
